FAERS Safety Report 18152475 (Version 1)
Quarter: 2020Q3

REPORT INFORMATION
  Report Type: Spontaneous
  Country: US (occurrence: US)
  Receive Date: 20200814
  Receipt Date: 20200814
  Transmission Date: 20201103
  Serious: No
  Sender: FDA-Public Use
  Company Number: US-TEVA-2020-US-1814293

PATIENT

DRUGS (1)
  1. CLONAZEPAM TEVA [Suspect]
     Active Substance: CLONAZEPAM
     Dosage: USING FOR 10 YEARS
     Route: 065

REACTIONS (5)
  - Anxiety [Unknown]
  - Therapeutic product effect incomplete [Unknown]
  - Euphoric mood [Unknown]
  - Sedation [Unknown]
  - Drug effect less than expected [Unknown]
